FAERS Safety Report 9645213 (Version 2)
Quarter: 2014Q1

REPORT INFORMATION
  Report Type: Report from Study
  Country: CZ (occurrence: CZ)
  Receive Date: 20131025
  Receipt Date: 20140121
  Transmission Date: 20141002
  Serious: Yes (Other)
  Sender: FDA-Public Use
  Company Number: CZ-ABBVIE-13P-217-1161752-00

PATIENT
  Age: 63 Year
  Sex: Male
  Weight: 91 kg

DRUGS (5)
  1. HUMIRA [Suspect]
     Indication: ANKYLOSING SPONDYLITIS
     Route: 058
     Dates: start: 20120619
  2. SOTAHEXAL [Concomitant]
     Indication: ARRHYTHMIA
  3. TRITACE [Concomitant]
     Indication: HYPERTENSION
  4. FURON [Concomitant]
     Indication: HYPERTENSION
  5. SPIRONOLACTON [Concomitant]
     Indication: HYPERTENSION

REACTIONS (2)
  - Arteriosclerosis coronary artery [Recovered/Resolved]
  - Chest discomfort [Recovered/Resolved]
